FAERS Safety Report 9383796 (Version 1)
Quarter: 2013Q3

REPORT INFORMATION
  Report Type: Spontaneous
  Country: FR (occurrence: FR)
  Receive Date: 20130704
  Receipt Date: 20130704
  Transmission Date: 20140515
  Serious: Yes (Other)
  Sender: FDA-Public Use
  Company Number: FR-BRISTOL-MYERS SQUIBB COMPANY-19051457

PATIENT
  Age: 29 Year
  Sex: Male

DRUGS (4)
  1. ABILIFY [Suspect]
     Indication: PSYCHOTIC DISORDER
     Route: 048
     Dates: start: 2009
  2. EFFEXOR [Concomitant]
  3. SERESTA [Concomitant]
  4. LAMICTAL [Concomitant]

REACTIONS (1)
  - Pathological gambling [Unknown]
